FAERS Safety Report 18267786 (Version 1)
Quarter: 2020Q3

REPORT INFORMATION
  Report Type: Spontaneous
  Country: CN (occurrence: CN)
  Receive Date: 20200915
  Receipt Date: 20200915
  Transmission Date: 20201103
  Serious: Yes (Hospitalization)
  Sender: FDA-Public Use
  Company Number: CN-PFIZER INC-2020353471

PATIENT
  Age: 52 Year
  Sex: Male
  Weight: 53 kg

DRUGS (4)
  1. DEANXIT [Suspect]
     Active Substance: FLUPENTIXOL DIHYDROCHLORIDE\MELITRACEN HYDROCHLORIDE
     Indication: ANXIETY
     Dosage: 1 DF, 2X/DAY
     Route: 048
     Dates: start: 20200817, end: 20200824
  2. OXYCONTIN [Concomitant]
     Active Substance: OXYCODONE HYDROCHLORIDE
     Indication: ANALGESIC THERAPY
     Dosage: 60 MG, 2X/DAY
     Route: 048
     Dates: start: 20200817, end: 20200827
  3. LYRICA [Suspect]
     Active Substance: PREGABALIN
     Indication: ANALGESIC THERAPY
     Dosage: 75 MG, 2X/DAY
     Route: 048
     Dates: start: 20200816, end: 20200825
  4. HYDROTALCITE [Concomitant]
     Active Substance: HYDROTALCITE
     Indication: SYMPTOMATIC TREATMENT
     Dosage: 1 G, 1X/DAY
     Route: 048
     Dates: start: 20200817, end: 20200817

REACTIONS (5)
  - Delirium tremens [Recovering/Resolving]
  - Off label use [Unknown]
  - Product use in unapproved indication [Unknown]
  - Tremor [Recovered/Resolved]
  - Drug ineffective for unapproved indication [Unknown]

NARRATIVE: CASE EVENT DATE: 20200820
